FAERS Safety Report 7679447-6 (Version None)
Quarter: 2011Q3

REPORT INFORMATION
  Report Type: 
  Country: None (occurrence: None)
  Receive Date: 20110812
  Receipt Date: 20110725
  Transmission Date: 20111222
  Serious: No
  Sender: FDA-Public Use
  Company Number: US-B.I. PHARMACEUTICALS,INC./RIDGEFIELD-2011-BP-18427BP

PATIENT
  Age: 71 Year
  Sex: Male

DRUGS (3)
  1. FLOMAX [Suspect]
     Indication: BENIGN PROSTATIC HYPERPLASIA
     Dosage: 0.4 MG
     Route: 048
     Dates: start: 20110101
  2. MULTI-VITAMIN [Concomitant]
     Indication: VITAMIN SUPPLEMENTATION
     Route: 048
  3. OMEPRAZOLE [Concomitant]
     Indication: BARRETT'S OESOPHAGUS
     Dosage: 40 MG
     Route: 048

REACTIONS (3)
  - TOOTH INJURY [None]
  - TOOTHACHE [None]
  - SENSITIVITY OF TEETH [None]
